FAERS Safety Report 20746000 (Version 1)
Quarter: 2022Q2

REPORT INFORMATION
  Report Type: Spontaneous
  Country: CN (occurrence: CN)
  Receive Date: 20220425
  Receipt Date: 20220425
  Transmission Date: 20220720
  Serious: Yes (Other)
  Sender: FDA-Public Use
  Company Number: CN-NOVARTISPH-NVSC2022CN095242

PATIENT

DRUGS (2)
  1. COSENTYX [Suspect]
     Active Substance: SECUKINUMAB
     Indication: Psoriasis
     Dosage: MONOTHERAPY, WHICH WAS INJECTED ONCE A WEEK AT BASELINE AND AT WEEK 1, 2, 3, AND 4
     Route: 065
  2. COSENTYX [Suspect]
     Active Substance: SECUKINUMAB
     Dosage: 300 MG PER TIME (THEN ADJUSTED TO ONCE EVEY 4 WEEKS)
     Route: 065

REACTIONS (1)
  - Lymphadenitis bacterial [Not Recovered/Not Resolved]
